FAERS Safety Report 18331326 (Version 1)
Quarter: 2020Q3

REPORT INFORMATION
  Report Type: Spontaneous
  Country: FR (occurrence: FR)
  Receive Date: 20200930
  Receipt Date: 20200930
  Transmission Date: 20201103
  Serious: Yes (Other)
  Sender: FDA-Public Use
  Company Number: FR-MYLANLABS-2020M1082451

PATIENT
  Age: 57 Year
  Sex: Male
  Weight: 108 kg

DRUGS (8)
  1. RAMIPRIL. [Concomitant]
     Active Substance: RAMIPRIL
     Dosage: 2.5 MILLIGRAM, QD
     Route: 048
     Dates: start: 20200704
  2. INSPRA [Suspect]
     Active Substance: EPLERENONE
     Indication: ACUTE CORONARY SYNDROME
     Dosage: 1 DOSAGE FORM, QD
     Route: 048
     Dates: start: 20200704
  3. AMIODARONE [Suspect]
     Active Substance: AMIODARONE
     Indication: ATRIAL FIBRILLATION
     Dosage: 200 MILLIGRAM, QD
     Route: 048
     Dates: start: 20200704
  4. ATORVASTATIN [Interacting]
     Active Substance: ATORVASTATIN
     Indication: ACUTE CORONARY SYNDROME
     Dosage: 80 MILLIGRAM, QD
     Route: 048
     Dates: start: 20200704
  5. DUOPLAVIN [Suspect]
     Active Substance: ASPIRIN\CLOPIDOGREL
     Indication: ACUTE CORONARY SYNDROME
     Dosage: 1 DOSAGE FORM, QD
     Route: 048
     Dates: start: 20200704
  6. XARELTO [Suspect]
     Active Substance: RIVAROXABAN
     Indication: ATRIAL FIBRILLATION
     Dosage: 1 DOSAGE FORM, QD
     Route: 048
     Dates: start: 20200704
  7. XULTOPHY 100/3.6 [Suspect]
     Active Substance: INSULIN DEGLUDEC\LIRAGLUTIDE
     Indication: TYPE 2 DIABETES MELLITUS
     Dosage: 26 INTERNATIONAL UNIT, QD (100 UNITS/ML AND 3.6 MG/ML )
     Route: 058
     Dates: start: 20200708, end: 20200716
  8. BISOPROLOL                         /00802602/ [Concomitant]
     Active Substance: BISOPROLOL
     Dosage: 2.5 MILLIGRAM, QD
     Route: 048
     Dates: start: 20200704

REACTIONS (7)
  - Abdominal pain [Recovered/Resolved]
  - Decreased appetite [Recovered/Resolved]
  - Hepatocellular injury [Recovering/Resolving]
  - Drug interaction [Unknown]
  - Eructation [Recovered/Resolved]
  - Abdominal distension [Recovered/Resolved]
  - Nausea [Recovered/Resolved]

NARRATIVE: CASE EVENT DATE: 20200710
